APPROVED DRUG PRODUCT: VALPROATE SODIUM
Active Ingredient: VALPROATE SODIUM
Strength: EQ 100MG BASE/ML
Dosage Form/Route: INJECTABLE;INJECTION
Application: A208120 | Product #001
Applicant: PHARMOBEDIENT CONSULTING LLC
Approved: Dec 22, 2021 | RLD: No | RS: No | Type: DISCN